FAERS Safety Report 7133067-0 (Version None)
Quarter: 2010Q4

REPORT INFORMATION
  Report Type: 
  Country: None (occurrence: None)
  Receive Date: 20101202
  Receipt Date: 20101119
  Transmission Date: 20110411
  Serious: Yes (Hospitalization)
  Sender: FDA-Public Use
  Company Number: B0680345A

PATIENT
  Sex: Male

DRUGS (5)
  1. LAMICTAL [Suspect]
     Indication: CONVULSION
     Dosage: 50MG PER DAY
     Route: 048
     Dates: start: 20100720, end: 20100726
  2. LAMICTAL [Suspect]
     Dosage: 100MG PER DAY
     Route: 048
     Dates: start: 20100727, end: 20100802
  3. LAMICTAL [Suspect]
     Dosage: 200MG PER DAY
     Route: 048
     Dates: start: 20100803, end: 20100917
  4. TEMODAL [Suspect]
     Indication: BRAIN NEOPLASM
     Dosage: 240MG PER DAY
     Route: 048
     Dates: start: 20100819, end: 20100823
  5. EXCEGRAN [Concomitant]
     Indication: CONVULSION
     Dosage: 200MG PER DAY
     Route: 048
     Dates: start: 20051025

REACTIONS (14)
  - C-REACTIVE PROTEIN INCREASED [None]
  - DERMATITIS EXFOLIATIVE [None]
  - DRUG RASH WITH EOSINOPHILIA AND SYSTEMIC SYMPTOMS [None]
  - EOSINOPHIL PERCENTAGE INCREASED [None]
  - HEPATIC FUNCTION ABNORMAL [None]
  - HERPES VIRUS INFECTION [None]
  - LYMPHOCYTE PERCENTAGE DECREASED [None]
  - NEUTROPHIL PERCENTAGE INCREASED [None]
  - OEDEMA PERIPHERAL [None]
  - PAPULE [None]
  - PERIVASCULAR DERMATITIS [None]
  - PRURITUS [None]
  - PYREXIA [None]
  - WHITE BLOOD CELL COUNT INCREASED [None]
